FAERS Safety Report 24724844 (Version 1)
Quarter: 2024Q4

REPORT INFORMATION
  Report Type: Spontaneous
  Country: BE (occurrence: BE)
  Receive Date: 20241212
  Receipt Date: 20241212
  Transmission Date: 20250115
  Serious: Yes (Death)
  Sender: TEVA
  Company Number: None

PATIENT
  Age: 53 Year
  Sex: Male
  Weight: 90 kg

DRUGS (3)
  1. BISOPROLOL [Interacting]
     Active Substance: BISOPROLOL
     Indication: Product used for unknown indication
     Route: 065
  2. SIMVASTATIN [Interacting]
     Active Substance: SIMVASTATIN
     Indication: Product used for unknown indication
     Route: 065
  3. CAMZYOS [Suspect]
     Active Substance: MAVACAMTEN
     Indication: Hypertrophic cardiomyopathy
     Dosage: 1X/D
     Route: 048
     Dates: start: 20241021, end: 20241104

REACTIONS (3)
  - Death [Fatal]
  - Drug interaction [Fatal]
  - Drug interaction [Fatal]

NARRATIVE: CASE EVENT DATE: 20241104
